FAERS Safety Report 17967055 (Version 4)
Quarter: 2020Q4

REPORT INFORMATION
  Report Type: Spontaneous
  Country: DE (occurrence: DE)
  Receive Date: 20200701
  Receipt Date: 20201007
  Transmission Date: 20210113
  Serious: Yes (Other)
  Sender: FDA-Public Use
  Company Number: DE-ROCHE-2633496

PATIENT
  Age: 9 Year
  Sex: Male

DRUGS (3)
  1. BETAMETHASONE. [Concomitant]
     Active Substance: BETAMETHASONE
     Indication: ANGIOEDEMA
     Route: 048
     Dates: start: 20200619, end: 20200619
  2. XOLAIR [Suspect]
     Active Substance: OMALIZUMAB
     Indication: CHRONIC SPONTANEOUS URTICARIA
     Route: 058
     Dates: start: 20200619
  3. DESLORATADINE. [Concomitant]
     Active Substance: DESLORATADINE
     Indication: ANGIOEDEMA
     Route: 048

REACTIONS (8)
  - Pulse abnormal [Recovered/Resolved]
  - Off label use [Unknown]
  - Pain in extremity [Recovered/Resolved]
  - Hyperhidrosis [Unknown]
  - Palpitations [Unknown]
  - Angioedema [Recovered/Resolved]
  - Blood pressure decreased [Recovered/Resolved]
  - Body temperature increased [Recovered/Resolved]

NARRATIVE: CASE EVENT DATE: 20200620
